FAERS Safety Report 9170106 (Version 1)
Quarter: 2013Q1

REPORT INFORMATION
  Report Type: Spontaneous
  Country: US (occurrence: None)
  Receive Date: 20130314
  Receipt Date: 20130314
  Transmission Date: 20140127
  Serious: No
  Sender: FDA-Public Use
  Company Number: None

PATIENT
  Age: 51 Year
  Sex: Female
  Weight: 107.5 kg

DRUGS (1)
  1. AZITHROMYCIN 250MG [Suspect]

REACTIONS (6)
  - Abdominal discomfort [None]
  - Dry mouth [None]
  - Tongue dry [None]
  - Skin burning sensation [None]
  - Flatulence [None]
  - Sleep disorder [None]
